FAERS Safety Report 5266569-2 (Version None)
Quarter: 2007Q1

REPORT INFORMATION
  Report Type: 
  Country: None (occurrence: None)
  Receive Date: 20070315
  Receipt Date: 20070306
  Transmission Date: 20070707
  Serious: Yes (Other)
  Sender: FDA-Public Use
  Company Number: DE-PFIZER INC-2007018329

PATIENT
  Sex: Male

DRUGS (4)
  1. ZOLOFT [Suspect]
     Indication: DEPRESSION
     Dosage: DAILY DOSE:100MG
     Route: 048
  2. MARCUMAR [Concomitant]
     Route: 048
  3. TAMBOCOR [Concomitant]
     Route: 048
  4. SALOFALK ^MERCK^ [Concomitant]
     Route: 048

REACTIONS (4)
  - ANTIDEPRESSANT DRUG LEVEL [None]
  - COORDINATION ABNORMAL [None]
  - DIZZINESS [None]
  - HYPOMANIA [None]
